FAERS Safety Report 4730487-6 (Version None)
Quarter: 2005Q3

REPORT INFORMATION
  Report Type: 
  Country: None (occurrence: None)
  Receive Date: 20050725
  Receipt Date: 20050523
  Transmission Date: 20060218
  Serious: No
  Sender: FDA-Public Use
  Company Number: USA050598582

PATIENT
  Age: 31 Year
  Sex: Female

DRUGS (1)
  1. STRATTERA [Suspect]
     Indication: ATTENTION DEFICIT/HYPERACTIVITY DISORDER
     Dosage: 25 MG DAY
     Dates: start: 20050518

REACTIONS (5)
  - DEPRESSION [None]
  - FATIGUE [None]
  - IRRITABILITY [None]
  - NAUSEA [None]
  - PRURITUS [None]
